FAERS Safety Report 5156812-2 (Version None)
Quarter: 2006Q4

REPORT INFORMATION
  Report Type: 
  Country: None (occurrence: None)
  Receive Date: 20061115
  Receipt Date: 20061102
  Transmission Date: 20070319
  Serious: Yes (Life-Threatening, Hospitalization, Other)
  Sender: FDA-Public Use
  Company Number: 2006134934

PATIENT
  Age: 80 Year
  Sex: Male

DRUGS (1)
  1. SULPERAZON (SULBACTAM, CEFOPERAZONE) [Suspect]
     Indication: INFECTION PROPHYLAXIS
     Dosage: INTRAVENOUS
     Route: 042
     Dates: end: 20060101

REACTIONS (2)
  - ANAPHYLACTIC SHOCK [None]
  - BRADYCARDIA [None]
